FAERS Safety Report 5192547-8 (Version None)
Quarter: 2006Q4

REPORT INFORMATION
  Report Type: 
  Country: None (occurrence: None)
  Receive Date: 20061220
  Receipt Date: 20061206
  Transmission Date: 20070319
  Serious: Yes (Other)
  Sender: FDA-Public Use
  Company Number: FR2006-016821

PATIENT
  Age: 68 Year
  Sex: Female

DRUGS (5)
  1. CAMPATH [Suspect]
     Indication: CHRONIC LYMPHOCYTIC LEUKAEMIA
     Dosage: 30 MG, 3X/WEEK, INTRAVENOUS
     Route: 042
     Dates: start: 20050420, end: 20060101
  2. BACTRIM [Concomitant]
  3. VALACYCLOVIR HCL [Concomitant]
  4. LEDERFOLIN [Concomitant]
  5. CIBACEN (BENAZEPRIL HYDROCHLORIDE) [Concomitant]

REACTIONS (1)
  - CHOLANGITIS SCLEROSING [None]
